FAERS Safety Report 13692563 (Version 2)
Quarter: 2017Q3

REPORT INFORMATION
  Report Type: Spontaneous
  Country: US (occurrence: US)
  Receive Date: 20170627
  Receipt Date: 20170818
  Transmission Date: 20171127
  Serious: No
  Sender: FDA-Public Use
  Company Number: US-PFIZER INC-2017275408

PATIENT
  Sex: Female

DRUGS (1)
  1. XELJANZ [Suspect]
     Active Substance: TOFACITINIB CITRATE
     Dosage: 5 MG, UNK

REACTIONS (5)
  - Pain in extremity [Unknown]
  - Arthralgia [Unknown]
  - Paraesthesia [Unknown]
  - Hypoaesthesia [Unknown]
  - Headache [Unknown]
